FAERS Safety Report 7885783-0 (Version None)
Quarter: 2011Q4

REPORT INFORMATION
  Report Type: 
  Country: None (occurrence: None)
  Receive Date: 20111102
  Receipt Date: 20110628
  Transmission Date: 20120403
  Serious: No
  Sender: FDA-Public Use
  Company Number: US-AMGEN-USASP2011033121

PATIENT
  Age: 46 Year
  Sex: Female

DRUGS (2)
  1. ENBREL [Suspect]
     Indication: PSORIASIS
     Dosage: 50 MG, 2 TIMES/WK
     Dates: start: 20110601
  2. TACLONEX [Concomitant]

REACTIONS (4)
  - INJECTION SITE ERYTHEMA [None]
  - DRY SKIN [None]
  - INJECTION SITE PRURITUS [None]
  - INJECTION SITE REACTION [None]
